FAERS Safety Report 24282180 (Version 3)
Quarter: 2024Q4

REPORT INFORMATION
  Report Type: Report from Study
  Country: CA (occurrence: CA)
  Receive Date: 20240904
  Receipt Date: 20241122
  Transmission Date: 20250114
  Serious: Yes (Hospitalization, Other)
  Sender: HLS THERAPEUTICS
  Company Number: CA-HLS-202402195

PATIENT
  Age: 61 Year
  Sex: Male

DRUGS (43)
  1. CLOZARIL [Suspect]
     Active Substance: CLOZAPINE
     Indication: Schizophrenia
     Route: 048
     Dates: start: 20240305
  2. CLOZARIL [Suspect]
     Active Substance: CLOZAPINE
     Indication: Schizophrenia
     Dosage: 200MG ONCE A DAILY AT BEDTIME
     Route: 048
     Dates: start: 20240719
  3. CLOZARIL [Suspect]
     Active Substance: CLOZAPINE
     Indication: Schizophrenia
     Dosage: 25MG DAILY AT BEDTIME
     Route: 048
     Dates: start: 20240814
  4. CLOZARIL [Suspect]
     Active Substance: CLOZAPINE
     Indication: Schizophrenia
     Dosage: APPROXIMATELY 300MG PRIOR TO FEBRUARY
     Route: 065
  5. VITAMIN B12 [Concomitant]
     Active Substance: CYANOCOBALAMIN
     Indication: Product used for unknown indication
     Dosage: 1200MG EVERY MORNING
     Route: 048
     Dates: start: 20240524
  6. VITAMIN D [Concomitant]
     Active Substance: VITAMIN D NOS
     Indication: Product used for unknown indication
     Route: 048
     Dates: start: 20240529
  7. CALCIUM [Concomitant]
     Active Substance: CALCIUM
     Indication: Product used for unknown indication
     Dosage: 1000MG  EVERY MORNING
     Route: 048
     Dates: start: 20240629
  8. COVID-19 Mrna [Concomitant]
     Indication: COVID-19
     Dosage: COVID-19 VACCINE MRNA LNP-S (MOD) PF?0.5ML AS DIRECTED AND NEEDED.
     Route: 030
     Dates: start: 20240517
  9. BISACODYL [Concomitant]
     Active Substance: BISACODYL
     Indication: Constipation
     Dosage: 10MG EVERY 24 HOURS
     Route: 054
     Dates: start: 20240108
  10. AMOXICILLIN\CLAVULANATE POTASSIUM [Concomitant]
     Active Substance: AMOXICILLIN\CLAVULANATE POTASSIUM
     Indication: Product used for unknown indication
     Dosage: 875/125MG TABLET EVERY MORNING AND EVERY EVENING
     Route: 048
     Dates: start: 20240829
  11. ASPIRIN [Concomitant]
     Active Substance: ASPIRIN
     Indication: Product used for unknown indication
     Route: 048
     Dates: start: 20240629
  12. ACETAMINOPHEN [Concomitant]
     Active Substance: ACETAMINOPHEN
     Indication: Pyrexia
     Dosage: THREE TIME A DAY
     Route: 048
     Dates: start: 20240628
  13. ACETAMINOPHEN [Concomitant]
     Active Substance: ACETAMINOPHEN
     Indication: Pain
     Dosage: THREE TIME A DAY
     Route: 048
     Dates: start: 20240628
  14. ACETAMINOPHEN [Concomitant]
     Active Substance: ACETAMINOPHEN
     Indication: Pyrexia
     Dosage: EVERY 4 HOUR AS PER NEEDED
     Route: 048
     Dates: start: 20230524, end: 20230928
  15. ACETAMINOPHEN [Concomitant]
     Active Substance: ACETAMINOPHEN
     Indication: Pain
     Dosage: EVERY 4 HOUR AS PER NEEDED
     Route: 048
     Dates: start: 20230524, end: 20230928
  16. Haloperidol Inj [Concomitant]
     Indication: Agitation
     Dosage: 2MG  EVERY 6 HOUR AS NEEDED
     Route: 030
     Dates: start: 20240301, end: 20240418
  17. Haloperidol Inj [Concomitant]
     Indication: Psychotic disorder
     Dosage: 2MG  EVERY 6 HOUR AS NEEDED
     Route: 030
     Dates: start: 20240301, end: 20240418
  18. HALOPERIDOL [Concomitant]
     Active Substance: HALOPERIDOL
     Indication: Agitation
     Route: 048
     Dates: start: 20240301, end: 20240810
  19. HALOPERIDOL [Concomitant]
     Active Substance: HALOPERIDOL
     Indication: Psychotic disorder
     Route: 048
     Dates: start: 20240301, end: 20240810
  20. GLYCERIN [Concomitant]
     Active Substance: GLYCERIN
     Indication: Constipation
     Dosage: 1 SUPPOSITORY DAILY PER RECTAL
     Route: 054
     Dates: start: 20240228
  21. FERROUS GLUCONATE [Concomitant]
     Active Substance: FERROUS GLUCONATE
     Dosage: 300MG EVERY OTHER DAY
     Route: 048
     Dates: start: 20240629
  22. DENOSUMAB [Concomitant]
     Active Substance: DENOSUMAB
     Indication: Product used for unknown indication
     Dosage: DENOSUMAB 60MG INJ 1 ML PREFILLED SYRINGE??Q180D @1000 SCH
     Route: 058
     Dates: start: 20240617
  23. DENOSUMAB [Concomitant]
     Active Substance: DENOSUMAB
     Indication: Product used for unknown indication
     Dosage: DENOSUMAB 60MG INJ 1 ML PREFILLED SYRINGE??Q180D @1000 SCH
     Route: 058
     Dates: start: 20230623
  24. VITAMINS [Concomitant]
     Active Substance: VITAMINS
     Indication: Product used for unknown indication
     Dosage: 1 TABLET DAILY IN THE MORNING
     Route: 048
     Dates: start: 20240629
  25. LORAZEPAM [Concomitant]
     Active Substance: LORAZEPAM
     Indication: Agitation
     Route: 030
     Dates: start: 20230526, end: 20240215
  26. LORAZEPAM [Concomitant]
     Active Substance: LORAZEPAM
     Indication: Anxiety
     Route: 060
     Dates: start: 20230526, end: 20240504
  27. LACTULOSE [Concomitant]
     Active Substance: LACTULOSE
     Route: 048
     Dates: start: 20230525
  28. IBUPROFEN [Concomitant]
     Active Substance: IBUPROFEN
     Indication: Pyrexia
     Route: 048
     Dates: start: 20230524, end: 20230904
  29. IBUPROFEN [Concomitant]
     Active Substance: IBUPROFEN
     Indication: Pain
     Route: 048
     Dates: start: 20230524, end: 20230904
  30. HYDROCORTISONE [Concomitant]
     Active Substance: HYDROCORTISONE
     Indication: Pruritus
     Dosage: 1 APP TOPICALLY EVERY 12 HOURS
     Route: 061
     Dates: start: 20230621, end: 20240714
  31. PERINDOPRIL [Concomitant]
     Active Substance: PERINDOPRIL
     Indication: Product used for unknown indication
     Route: 048
     Dates: start: 20240629
  32. PANTOPRAZOLE [Concomitant]
     Active Substance: PANTOPRAZOLE
     Indication: Product used for unknown indication
     Route: 048
     Dates: start: 20240629
  33. PALIPERIDONE PALMITATE [Concomitant]
     Active Substance: PALIPERIDONE PALMITATE
     Indication: Product used for unknown indication
     Route: 030
     Dates: start: 20240321
  34. ROSUVASTATIN [Concomitant]
     Active Substance: ROSUVASTATIN
     Indication: Product used for unknown indication
     Dosage: DAILY AT BEDTIME
     Route: 048
     Dates: start: 20240628
  35. RISPERIDONE [Concomitant]
     Active Substance: RISPERIDONE
     Indication: Agitation
     Route: 048
     Dates: start: 20240419, end: 20240722
  36. RISPERIDONE [Concomitant]
     Active Substance: RISPERIDONE
     Indication: Psychotic disorder
     Route: 048
     Dates: start: 20240419, end: 20240722
  37. QUETIAPINE [Concomitant]
     Active Substance: QUETIAPINE
     Indication: Insomnia
     Dosage: 50MG DAILY AT BEDTIME
     Route: 048
     Dates: start: 20230524, end: 20240815
  38. POTASSIUM CHLORIDE [Concomitant]
     Active Substance: POTASSIUM CHLORIDE
     Dosage: 40 MEQ EVERY MORNING
     Route: 048
     Dates: start: 20240829
  39. POLYETHYLENE GLYCOL 3350 [Concomitant]
     Active Substance: POLYETHYLENE GLYCOL 3350
     Indication: Constipation
     Dosage: 1 PACK DAILY
     Route: 048
     Dates: start: 20230525
  40. POLYETHYLENE GLYCOL 3350 [Concomitant]
     Active Substance: POLYETHYLENE GLYCOL 3350
     Indication: Constipation
     Dosage: 1 PACK EVERY 8 HOUR
     Route: 048
     Dates: start: 20240828
  41. VITAMIN B1 [Concomitant]
     Active Substance: THIAMINE HYDROCHLORIDE
     Indication: Product used for unknown indication
     Dosage: DAILY
     Route: 048
     Dates: start: 20240629
  42. Tamsolusin Cr [Concomitant]
     Indication: Product used for unknown indication
     Dosage: DAILY AT BEDTIME
     Route: 048
     Dates: start: 20240628
  43. SENNOSIDES [Concomitant]
     Active Substance: SENNOSIDES
     Indication: Constipation
     Route: 048
     Dates: start: 20240619

REACTIONS (14)
  - Agitation [Unknown]
  - Spinal compression fracture [Unknown]
  - Fall [Unknown]
  - Coordination abnormal [Unknown]
  - Hypotension [Unknown]
  - Leukocytosis [Unknown]
  - Atelectasis [Unknown]
  - Diarrhoea [Unknown]
  - Haematochezia [Unknown]
  - Vomiting [Unknown]
  - Diverticulitis [Recovering/Resolving]
  - Constipation [Unknown]
  - Small intestinal obstruction [Not Recovered/Not Resolved]
  - Syncope [Unknown]
